FAERS Safety Report 7807560-9 (Version None)
Quarter: 2011Q4

REPORT INFORMATION
  Report Type: 
  Country: None (occurrence: None)
  Receive Date: 20111011
  Receipt Date: 20111004
  Transmission Date: 20120403
  Serious: Yes (Hospitalization)
  Sender: FDA-Public Use
  Company Number: DE-GLAXOSMITHKLINE-B0752675A

PATIENT
  Sex: Female
  Weight: 61 kg

DRUGS (8)
  1. ACTONEL [Concomitant]
     Indication: OSTEOPOROSIS
     Dosage: 35MG WEEKLY
     Route: 048
     Dates: start: 20101001
  2. CALCIUM D3 [Concomitant]
     Indication: OSTEOPOROSIS
     Dosage: 600MG PER DAY
     Route: 048
     Dates: start: 20101001
  3. NALOXONE [Concomitant]
     Indication: PAIN
     Dosage: 10MG PER DAY
     Route: 048
     Dates: start: 20110926
  4. DOXORUBICIN HCL [Suspect]
     Indication: BREAST CANCER
     Dosage: 103MG EVERY 3 WEEKS
     Route: 042
     Dates: start: 20110914
  5. LAPATINIB [Suspect]
     Indication: BREAST CANCER
     Dosage: 1250MG PER DAY
     Route: 048
     Dates: start: 20110824
  6. NEBIVOLOL HCL [Concomitant]
     Indication: HYPERTENSION
     Dosage: 2.5MG PER DAY
     Route: 048
     Dates: start: 20110721
  7. NOVALGIN [Concomitant]
     Indication: PAIN
     Dosage: 1G PER DAY
     Route: 042
     Dates: start: 20110925, end: 20110925
  8. TAXOL [Suspect]
     Indication: BREAST CANCER
     Dosage: 229MG EVERY 3 WEEKS
     Route: 042
     Dates: start: 20110914

REACTIONS (4)
  - CHOLECYSTITIS [None]
  - GALLBLADDER NECROSIS [None]
  - OPERATIVE HAEMORRHAGE [None]
  - PANCREATITIS [None]
